FAERS Safety Report 25985566 (Version 1)
Quarter: 2025Q4

REPORT INFORMATION
  Report Type: Spontaneous
  Country: US (occurrence: US)
  Receive Date: 20251101
  Receipt Date: 20251101
  Transmission Date: 20260118
  Serious: No
  Sender: SOMERSET THERAPEUTICS, LLC
  Company Number: US-MIT-25-75-US-2025-SOM-SPO-00064

PATIENT
  Sex: Female

DRUGS (2)
  1. LATANOPROST [Suspect]
     Active Substance: LATANOPROST
     Indication: Product used for unknown indication
     Route: 065
  2. BRIMONIDINE TARTRATE [Suspect]
     Active Substance: BRIMONIDINE TARTRATE
     Indication: Product used for unknown indication
     Route: 065

REACTIONS (4)
  - Visual impairment [Unknown]
  - Cyanopsia [Unknown]
  - Alopecia [Unknown]
  - Madarosis [Unknown]
